FAERS Safety Report 5971336-8 (Version None)
Quarter: 2008Q4

REPORT INFORMATION
  Report Type: 
  Country: None (occurrence: None)
  Receive Date: 20081128
  Receipt Date: 20081121
  Transmission Date: 20090506
  Serious: Yes (Hospitalization)
  Sender: FDA-Public Use
  Company Number: FR-PFIZER INC-2008099974

PATIENT
  Sex: Female

DRUGS (14)
  1. ZYVOXID [Suspect]
     Route: 042
     Dates: start: 20080924, end: 20080927
  2. VANCOMYCIN [Suspect]
     Route: 042
     Dates: start: 20080829, end: 20080924
  3. GENTAMYCIN SULFATE [Suspect]
     Dates: start: 20080829, end: 20080924
  4. PREGABALIN [Concomitant]
  5. RIFAMPICIN [Concomitant]
     Route: 042
     Dates: start: 20080927, end: 20081010
  6. OFLOXACIN [Concomitant]
     Route: 042
     Dates: start: 20080927, end: 20081010
  7. TRAMADOL HCL [Concomitant]
  8. TETRAZEPAM [Concomitant]
  9. ESTRADIOL [Concomitant]
  10. CHLORMADINONE ACETATE TAB [Concomitant]
  11. FORMOTEROL W/BUDESONIDE [Concomitant]
  12. INDAPAMIDE [Concomitant]
  13. SPIRONOLACTONE [Concomitant]
  14. DULOXETINE [Concomitant]

REACTIONS (6)
  - DRUG RASH WITH EOSINOPHILIA AND SYSTEMIC SYMPTOMS [None]
  - DYSPHAGIA [None]
  - DYSPNOEA [None]
  - HEART RATE INCREASED [None]
  - PYREXIA [None]
  - TREATMENT FAILURE [None]
